FAERS Safety Report 8829368 (Version 2)
Quarter: 2012Q4

REPORT INFORMATION
  Report Type: Report from Study
  Country: JP (occurrence: JP)
  Receive Date: 20121008
  Receipt Date: 20121120
  Transmission Date: 20130627
  Serious: Yes (Hospitalization)
  Sender: FDA-Public Use
  Company Number: JP-VERTEX PHARMACEUTICAL INC.-2012-022353

PATIENT
  Age: 61 Year
  Sex: Male

DRUGS (13)
  1. VX-950 (TELAPREVIR) [Suspect]
     Indication: CHRONIC HEPATITIS C
     Dosage: 2250 mg, qd
     Route: 048
     Dates: start: 20120802, end: 20120809
  2. RIBAVIRIN [Suspect]
     Indication: CHRONIC HEPATITIS C
     Dosage: 600 mg, qd
     Route: 048
     Dates: start: 20120802, end: 20120809
  3. RIBAVIRIN [Suspect]
     Dosage: 600 mg, qd
     Route: 048
     Dates: start: 20120822, end: 20121025
  4. PEGINTERFERON ALFA-2B [Suspect]
     Indication: CHRONIC HEPATITIS C
     Dosage: UNK, qw
     Route: 058
     Dates: start: 20120809, end: 20120809
  5. PEGINTERFERON ALFA-2B [Suspect]
     Dosage: 1.5 ?g/kg, qw
     Route: 058
     Dates: start: 20120822, end: 20121018
  6. GLACTIV [Concomitant]
     Route: 048
  7. AMLODIN [Concomitant]
     Route: 048
  8. BLOPRESS [Concomitant]
     Route: 048
  9. MAGLAX [Concomitant]
     Route: 048
  10. TERNELIN [Concomitant]
     Route: 048
  11. ROHYPNOL [Concomitant]
     Route: 048
  12. URSO                               /00465701/ [Concomitant]
     Dosage: 600 mg, qd
     Route: 048
     Dates: start: 20120822
  13. PRIMPERAN [Concomitant]
     Dosage: 15 mg, qd
     Route: 048
     Dates: start: 20120927, end: 20121025

REACTIONS (1)
  - Renal failure [Recovered/Resolved]
